FAERS Safety Report 14422735 (Version 1)
Quarter: 2018Q1

REPORT INFORMATION
  Report Type: Report from Study
  Country: None (occurrence: HU)
  Receive Date: 20180123
  Receipt Date: 20180123
  Transmission Date: 20180509
  Serious: Yes (Other)
  Sender: FDA-Public Use
  Company Number: HU-ABBVIE-17K-076-2132307-00

PATIENT
  Age: 61 Year
  Sex: Male

DRUGS (2)
  1. HUMIRA [Suspect]
     Active Substance: ADALIMUMAB
     Indication: ANKYLOSING SPONDYLITIS
     Route: 058
     Dates: start: 201606
  2. HUMIRA [Suspect]
     Active Substance: ADALIMUMAB
     Indication: ANKYLOSING SPONDYLITIS
     Route: 058
     Dates: end: 201708

REACTIONS (4)
  - Vocal cord disorder [Not Recovered/Not Resolved]
  - Speech disorder [Unknown]
  - Aphonia [Not Recovered/Not Resolved]
  - Oropharyngeal neoplasm [Unknown]

NARRATIVE: CASE EVENT DATE: 2017
